FAERS Safety Report 8372461-7 (Version None)
Quarter: 2012Q2

REPORT INFORMATION
  Report Type: 
  Country: None (occurrence: None)
  Receive Date: 20120521
  Receipt Date: 20120518
  Transmission Date: 20120825
  Serious: No
  Sender: FDA-Public Use
  Company Number: US-PFIZER INC-2012121473

PATIENT
  Sex: Female
  Weight: 183.67 kg

DRUGS (6)
  1. ATIVAN [Concomitant]
     Indication: ANXIETY
  2. NEXIUM [Concomitant]
     Indication: GASTROOESOPHAGEAL REFLUX DISEASE
     Dosage: 40 MG, 2X/DAY
  3. SERTRALINE HYDROCHLORIDE [Suspect]
     Indication: ANXIETY
  4. ATIVAN [Concomitant]
     Indication: DEPRESSION
     Dosage: UNK, DAILY
     Route: 048
  5. SERTRALINE HYDROCHLORIDE [Suspect]
     Indication: DEPRESSION
     Dosage: 50 MG, DAILY
  6. NEXIUM [Concomitant]
     Indication: GASTRITIS

REACTIONS (1)
  - FOOD ALLERGY [None]
